FAERS Safety Report 9410446 (Version 1)
Quarter: 2013Q3

REPORT INFORMATION
  Report Type: Spontaneous
  Country: AU (occurrence: AU)
  Receive Date: 20130719
  Receipt Date: 20130719
  Transmission Date: 20140515
  Serious: Yes (Hospitalization, Other)
  Sender: FDA-Public Use
  Company Number: AU-AMGEN-AUSSP2013050634

PATIENT
  Sex: Male

DRUGS (4)
  1. ENBREL [Suspect]
     Indication: PRODUCT USED FOR UNKNOWN INDICATION
     Dosage: 25 MG, 2X/WEEK
     Route: 058
     Dates: start: 200309
  2. METHOTREXATE SODIUM [Concomitant]
     Dosage: 20 MG, WEEKLY
  3. FOLIC ACID [Concomitant]
     Dosage: 0.5 MG, 2X/DAY
  4. PREDNISONE [Concomitant]
     Dosage: 5 MG, 1X/DAY

REACTIONS (1)
  - Osteoarthritis [Unknown]
